FAERS Safety Report 4916461-5 (Version None)
Quarter: 2006Q1

REPORT INFORMATION
  Report Type: 
  Country: None (occurrence: None)
  Receive Date: 20060214
  Receipt Date: 20060130
  Transmission Date: 20060701
  Serious: Yes (Other)
  Sender: FDA-Public Use
  Company Number: S06-FRA-00439-01

PATIENT
  Age: 53 Year
  Sex: Male

DRUGS (2)
  1. ESCITALOPRAM OXALATE [Suspect]
  2. PROZAC [Suspect]

REACTIONS (2)
  - AGITATION [None]
  - LEGAL PROBLEM [None]
